FAERS Safety Report 8866605 (Version 1)
Quarter: 2012Q4

REPORT INFORMATION
  Report Type: 
  Country: US (occurrence: US)
  Receive Date: 20121025
  Receipt Date: 20121025
  Transmission Date: 20130627
  Serious: No
  Sender: FDA-Public Use
  Company Number: US-AMGEN-USASP2012012609

PATIENT
  Age: 45 Year
  Sex: Female
  Weight: 99.77 kg

DRUGS (8)
  1. ENBREL [Suspect]
     Indication: PRODUCT USED FOR UNKNOWN INDICATION
     Dosage: 50 mg, qwk
     Route: 058
  2. HYDROCHLOROTH [Concomitant]
     Dosage: 12.5 mg, UNK
  3. MULTIPLE VITAMINS [Concomitant]
  4. VITAMIN D /00107901/ [Concomitant]
     Dosage: 2000 IU, UNK
  5. FISH OIL [Concomitant]
  6. ASA [Concomitant]
     Dosage: 81 mg, UNK
  7. VITAMIN C                          /00008001/ [Concomitant]
     Dosage: 500 mg, UNK
  8. POTASSIUM CHLORIDE [Concomitant]
     Dosage: 10 mEq, UNK

REACTIONS (3)
  - Influenza [Unknown]
  - Injection site bruising [Unknown]
  - Injection site erythema [Unknown]
